FAERS Safety Report 4407192-9 (Version None)
Quarter: 2004Q3

REPORT INFORMATION
  Report Type: 
  Country: None (occurrence: None)
  Receive Date: 20040723
  Receipt Date: 20040723
  Transmission Date: 20050211
  Serious: Yes (Other)
  Sender: FDA-Public Use
  Company Number: None

PATIENT
  Age: 77 Year
  Sex: Male
  Weight: 87.1 kg

DRUGS (11)
  1. METOCLOPRAMIDE [Suspect]
  2. OMEPRAZOLE [Concomitant]
  3. NPH INSULIN [Concomitant]
  4. SIMVASTATIN [Concomitant]
  5. METOPROLOL SUCCINATE [Concomitant]
  6. FOSINOPRIL SODIUM [Concomitant]
  7. HYDROCHLOROTHIAZIDE [Concomitant]
  8. NIACIN ER [Concomitant]
  9. IBUPROFEN [Concomitant]
  10. GEMFIBROZIL [Concomitant]
  11. ACETAMINOPHEN AND HYDROCODONE BITARTRATE [Concomitant]

REACTIONS (1)
  - DELIRIUM [None]
